FAERS Safety Report 6254074-6 (Version None)
Quarter: 2009Q2

REPORT INFORMATION
  Report Type: 
  Country: None (occurrence: None)
  Receive Date: 20090630
  Receipt Date: 20090630
  Transmission Date: 20091009
  Serious: No
  Sender: FDA-Public Use
  Company Number: None

PATIENT
  Age: 51 Year
  Sex: Female
  Weight: 60.3284 kg

DRUGS (1)
  1. CRESTOR [Suspect]
     Indication: BLOOD CHOLESTEROL INCREASED
     Dosage: 5MG 2XDAILY PO
     Route: 048
     Dates: start: 20090301, end: 20090501

REACTIONS (4)
  - FATIGUE [None]
  - LETHARGY [None]
  - NIGHTMARE [None]
  - PERSONALITY CHANGE [None]
